FAERS Safety Report 21739882 (Version 13)
Quarter: 2025Q1

REPORT INFORMATION
  Report Type: Report from Study
  Country: CO (occurrence: CO)
  Receive Date: 20221216
  Receipt Date: 20250327
  Transmission Date: 20250409
  Serious: Yes (Hospitalization, Other)
  Sender: NOVARTIS
  Company Number: CO-002147023-NVSC2022CO290056

PATIENT
  Sex: Female
  Weight: 65 kg

DRUGS (5)
  1. KISQALI [Suspect]
     Active Substance: RIBOCICLIB
     Indication: Breast cancer metastatic
     Dosage: 600 MG, QD
     Route: 048
     Dates: start: 20221201
  2. KISQALI [Suspect]
     Active Substance: RIBOCICLIB
     Indication: Hormone receptor positive HER2 negative breast cancer
  3. FEMARA [Suspect]
     Active Substance: LETROZOLE
     Indication: Breast cancer metastatic
     Dosage: 2.5 MG, QD
     Route: 048
     Dates: start: 20221201
  4. FEMARA [Suspect]
     Active Substance: LETROZOLE
     Indication: Hormone receptor positive HER2 negative breast cancer
     Route: 048
  5. MORPHINE HYDROCHLORIDE [Concomitant]
     Active Substance: MORPHINE HYDROCHLORIDE
     Indication: Product used for unknown indication
     Route: 065

REACTIONS (21)
  - Breast pain [Unknown]
  - Leukaemia [Unknown]
  - Lung disorder [Unknown]
  - Pain [Unknown]
  - Feeding disorder [Unknown]
  - Wound [Unknown]
  - Affective disorder [Unknown]
  - Insomnia [Unknown]
  - Memory impairment [Unknown]
  - Seizure [Unknown]
  - Speech disorder [Unknown]
  - Investigation abnormal [Unknown]
  - Headache [Unknown]
  - Gastritis [Recovered/Resolved]
  - Vomiting [Unknown]
  - Facial paralysis [Unknown]
  - Tremor [Unknown]
  - Weight decreased [Unknown]
  - Malaise [Unknown]
  - Visual impairment [Unknown]
  - Abdominal pain upper [Recovered/Resolved]

NARRATIVE: CASE EVENT DATE: 20240101
